FAERS Safety Report 20566026 (Version 1)
Quarter: 2022Q1

REPORT INFORMATION
  Report Type: Spontaneous
  Country: US (occurrence: US)
  Receive Date: 20220308
  Receipt Date: 20220308
  Transmission Date: 20220424
  Serious: No
  Sender: FDA-Public Use
  Company Number: US-TARO-2021TAR00143

PATIENT

DRUGS (3)
  1. NYSTATIN [Suspect]
     Active Substance: NYSTATIN
     Indication: Fungal infection
     Dosage: 100000 UNITS/GRAM, SINGLE, APPLICATORFUL
     Route: 067
     Dates: start: 202101
  2. NYSTATIN [Suspect]
     Active Substance: NYSTATIN
     Dosage: UNK
     Route: 065
  3. MICONAZOLE NITRATE [Suspect]
     Active Substance: MICONAZOLE NITRATE
     Indication: Cystitis
     Dosage: UNK
     Route: 067

REACTIONS (4)
  - Accidental exposure to product [Unknown]
  - Incorrect route of product administration [Unknown]
  - Expired product administered [Unknown]
  - Drug ineffective [Unknown]
